FAERS Safety Report 8999663 (Version 1)
Quarter: 2013Q1

REPORT INFORMATION
  Report Type: Spontaneous
  Country: US (occurrence: US)
  Receive Date: 20130102
  Receipt Date: 20130102
  Transmission Date: 20140127
  Serious: Yes (Hospitalization)
  Sender: FDA-Public Use
  Company Number: US-ARROW-2012-22784

PATIENT
  Sex: Male
  Weight: 64 kg

DRUGS (2)
  1. FENTANYL [Suspect]
     Indication: PAIN
     Dosage: 100MCG, ONE PATCH EVERY 48 HOURS
     Route: 062
     Dates: start: 20121130
  2. FENTANYL [Suspect]
     Dosage: 100MCG, ONE PATCH EVERY 48 HOURS
     Route: 062
     Dates: start: 20090101, end: 20121129

REACTIONS (6)
  - Blood potassium decreased [Recovered/Resolved]
  - Withdrawal syndrome [Not Recovered/Not Resolved]
  - Diarrhoea [Not Recovered/Not Resolved]
  - Vomiting [Not Recovered/Not Resolved]
  - Tremor [Not Recovered/Not Resolved]
  - Drug ineffective [Not Recovered/Not Resolved]
